FAERS Safety Report 6591142-3 (Version None)
Quarter: 2010Q1

REPORT INFORMATION
  Report Type: 
  Country: None (occurrence: None)
  Receive Date: 20100219
  Receipt Date: 20090616
  Transmission Date: 20100710
  Serious: Yes (Other)
  Sender: FDA-Public Use
  Company Number: US-BRISTOL-MYERS SQUIBB COMPANY-14667448

PATIENT
  Sex: Male

DRUGS (1)
  1. KENALOG [Suspect]
     Dosage: INJECTED IN ANTERIOR TIP OF INFERIOR NASAL TURBINATES
     Route: 045
     Dates: start: 20081223, end: 20081223

REACTIONS (1)
  - BLINDNESS [None]
